FAERS Safety Report 4882018-8 (Version None)
Quarter: 2006Q1

REPORT INFORMATION
  Report Type: 
  Country: None (occurrence: None)
  Receive Date: 20060117
  Receipt Date: 20051109
  Transmission Date: 20060701
  Serious: Yes (Congenital Anomaly)
  Sender: FDA-Public Use
  Company Number: NZ-AVENTIS-200514210EU

PATIENT
  Sex: Male

DRUGS (3)
  1. CLEXANE [Suspect]
     Route: 064
  2. CLEXANE [Suspect]
     Route: 064
  3. FOLIC ACID [Concomitant]
     Route: 064
     Dates: end: 20040131

REACTIONS (3)
  - DRUG EXPOSURE DURING PREGNANCY [None]
  - LARYNGEAL STENOSIS [None]
  - LARYNGOMALACIA [None]
